FAERS Safety Report 4920402-4 (Version None)
Quarter: 2006Q1

REPORT INFORMATION
  Report Type: 
  Country: None (occurrence: None)
  Receive Date: 20060223
  Receipt Date: 20051025
  Transmission Date: 20060701
  Serious: Yes (Hospitalization)
  Sender: FDA-Public Use
  Company Number: CA-MERCK-0510CAN00251

PATIENT
  Age: 51 Year
  Sex: Male
  Weight: 146 kg

DRUGS (8)
  1. VIOXX [Suspect]
     Indication: ARTHRITIS
     Route: 048
     Dates: start: 20001123, end: 20021015
  2. VIOXX [Suspect]
     Indication: OSTEOARTHRITIS
     Route: 048
     Dates: start: 20001123, end: 20021015
  3. ATORVASTATIN CALCIUM [Concomitant]
     Indication: HYPERCHOLESTEROLAEMIA
     Route: 065
     Dates: start: 20000710, end: 20021007
  4. OMEPRAZOLE MAGNESIUM [Concomitant]
     Indication: DYSPEPSIA
     Route: 065
     Dates: start: 20010529, end: 20020426
  5. OMEPRAZOLE MAGNESIUM [Concomitant]
     Indication: ULCER
     Route: 065
     Dates: start: 20010529, end: 20020426
  6. ASPIRIN [Concomitant]
     Route: 065
  7. INDOMETHACIN [Concomitant]
     Route: 065
  8. ACETAMINOPHEN AND OXYCODONE HYDROCHLORIDE [Concomitant]
     Route: 065

REACTIONS (6)
  - ACUTE CORONARY SYNDROME [None]
  - ANGINA UNSTABLE [None]
  - CARDIOMEGALY [None]
  - CHEST PAIN [None]
  - MYOCARDIAL INFARCTION [None]
  - NON-CARDIAC CHEST PAIN [None]
